FAERS Safety Report 6903235-9 (Version None)
Quarter: 2010Q3

REPORT INFORMATION
  Report Type: 
  Country: None (occurrence: None)
  Receive Date: 20100803
  Receipt Date: 20080624
  Transmission Date: 20110219
  Serious: No
  Sender: FDA-Public Use
  Company Number: US-PFIZER INC-2008017049

PATIENT
  Age: 51 Year
  Sex: Female
  Weight: 90.7 kg

DRUGS (6)
  1. LYRICA [Suspect]
     Indication: FIBROMYALGIA
     Route: 048
     Dates: end: 20080101
  2. CYMBALTA [Concomitant]
  3. METFORMIN HCL [Concomitant]
  4. PEPCID [Concomitant]
  5. SYNTHROID [Concomitant]
  6. METHADONE HCL [Concomitant]

REACTIONS (1)
  - PERIORBITAL OEDEMA [None]
